FAERS Safety Report 9714813 (Version 2)
Quarter: 2013Q4

REPORT INFORMATION
  Report Type: Spontaneous
  Country: FR (occurrence: FR)
  Receive Date: 20131126
  Receipt Date: 20131126
  Transmission Date: 20140711
  Serious: Yes (Hospitalization)
  Sender: FDA-Public Use
  Company Number: FR-B.I. PHARMACEUTICALS,INC./RIDGEFIELD-2013-FF-02701FF

PATIENT
  Age: 74 Year
  Sex: Female

DRUGS (6)
  1. PRADAXA [Suspect]
     Indication: ATRIAL FIBRILLATION
     Dosage: 300 MG
     Route: 048
     Dates: start: 201303, end: 20130916
  2. COVERSYL [Suspect]
     Indication: HYPERTENSION
     Dosage: 2.5 MG
     Route: 048
     Dates: start: 201303, end: 20130916
  3. DETENSIEL [Suspect]
     Indication: HYPERTENSION
     Dosage: 10 MG
     Route: 048
     Dates: start: 201303, end: 20130916
  4. LEVOTHYROX [Suspect]
     Indication: HYPOTHYROIDISM
     Dosage: 100 MCG
     Route: 048
  5. LASILIX [Suspect]
     Indication: HYPERTENSION
     Dosage: 20 MCG
     Route: 048
     Dates: end: 20130916
  6. OMEPRAZOLE [Suspect]
     Dosage: 20 MG
     Route: 048
     Dates: end: 20130916

REACTIONS (3)
  - Rectal haemorrhage [Recovered/Resolved]
  - Haemorrhagic anaemia [Recovered/Resolved]
  - Acute myocardial infarction [Not Recovered/Not Resolved]
